FAERS Safety Report 17040121 (Version 2)
Quarter: 2020Q1

REPORT INFORMATION
  Report Type: Spontaneous
  Country: US (occurrence: US)
  Receive Date: 20191116
  Receipt Date: 20200306
  Transmission Date: 20200409
  Serious: No
  Sender: FDA-Public Use
  Company Number: US-TORRENT-00007770

PATIENT
  Sex: Male

DRUGS (2)
  1. LOSARTAN. [Suspect]
     Active Substance: LOSARTAN
     Indication: HYPERTENSION
     Dosage: STARTED 5-6 YEARS AGO
  2. AMLODIPINE [Concomitant]
     Active Substance: AMLODIPINE BESYLATE
     Indication: HYPERTENSION

REACTIONS (2)
  - Pruritus [Recovered/Resolved]
  - Skin reaction [Recovered/Resolved]
